FAERS Safety Report 21651763 (Version 1)
Quarter: 2022Q4

REPORT INFORMATION
  Report Type: Spontaneous
  Country: CN (occurrence: CN)
  Receive Date: 20221128
  Receipt Date: 20221128
  Transmission Date: 20230112
  Serious: Yes (Life-Threatening, Hospitalization)
  Sender: FDA-Public Use
  Company Number: CN-PFIZER INC-PV202200111935

PATIENT
  Age: 16 Year
  Sex: Male
  Weight: 60 kg

DRUGS (2)
  1. CYTARABINE [Suspect]
     Active Substance: CYTARABINE
     Indication: Chemotherapy
     Dosage: 2 G, 2X/DAY
     Route: 041
     Dates: start: 20221015, end: 20221017
  2. SODIUM CHLORIDE [Concomitant]
     Active Substance: SODIUM CHLORIDE
     Indication: Chemotherapy
     Dosage: 500 ML, 2X/DAY
     Route: 041
     Dates: start: 20221015, end: 20221017

REACTIONS (3)
  - Granulocyte count decreased [Recovered/Resolved]
  - Oral infection [Recovered/Resolved]
  - Myelosuppression [Recovered/Resolved]

NARRATIVE: CASE EVENT DATE: 20221020
